FAERS Safety Report 4888108-8 (Version None)
Quarter: 2006Q1

REPORT INFORMATION
  Report Type: 
  Country: None (occurrence: None)
  Receive Date: 20060123
  Receipt Date: 20060110
  Transmission Date: 20060701
  Serious: Yes (Other)
  Sender: FDA-Public Use
  Company Number: US-JNJFOC-20051201700

PATIENT
  Sex: Male
  Weight: 83.92 kg

DRUGS (4)
  1. REMICADE [Suspect]
     Dosage: THE PATIENT RECEIVED A TOTAL OF 25 INFLIXIMAB INFUSIONS.
     Route: 042
  2. REMICADE [Suspect]
     Indication: RHEUMATOID ARTHRITIS
     Route: 042
  3. METHOTREXATE [Concomitant]
     Indication: DRUG USE FOR UNKNOWN INDICATION
  4. AZATHIOPRINE [Concomitant]
     Indication: DRUG USE FOR UNKNOWN INDICATION

REACTIONS (1)
  - HODGKIN'S DISEASE STAGE II [None]
